FAERS Safety Report 5471077-X (Version None)
Quarter: 2007Q3

REPORT INFORMATION
  Report Type: 
  Country: None (occurrence: None)
  Receive Date: 20070928
  Receipt Date: 20070919
  Transmission Date: 20080115
  Serious: Yes (Other)
  Sender: FDA-Public Use
  Company Number: HQWYE230220SEP07

PATIENT
  Sex: Male

DRUGS (10)
  1. TORISEL [Suspect]
     Indication: RENAL CELL CARCINOMA STAGE UNSPECIFIED
     Route: 042
     Dates: start: 20070911, end: 20070911
  2. VYTORIN [Concomitant]
     Dosage: 10/20 MG DAILY
     Route: 048
  3. OXYCODONE HCL [Concomitant]
     Indication: PAIN
     Dosage: 5 MG AS NEEDED FOR PAIN
     Route: 048
  4. NPH INSULIN [Concomitant]
     Indication: DIABETES MELLITUS
     Dosage: SLIDING SCALE
     Route: 058
  5. AMITRIPTYLINE HCL [Concomitant]
     Dosage: NOT PROVIDED
     Route: 048
  6. LYRICA [Concomitant]
     Indication: NEURALGIA
     Route: 048
  7. FENTANYL [Concomitant]
     Indication: PAIN
     Dosage: 100 MCG PATCH EVERY 2 DAYS
     Route: 061
  8. MEGACE [Concomitant]
     Indication: DECREASED APPETITE
     Dosage: AS NEEDED
     Route: 048
  9. FUROSEMIDE [Concomitant]
     Route: 048
  10. NEXIUM [Concomitant]
     Route: 048

REACTIONS (2)
  - BLOOD CREATININE INCREASED [None]
  - BLOOD UREA INCREASED [None]
